FAERS Safety Report 5796753-0 (Version None)
Quarter: 2008Q2

REPORT INFORMATION
  Report Type: 
  Country: None (occurrence: None)
  Receive Date: 20080630
  Receipt Date: 20080630
  Transmission Date: 20081010
  Serious: No
  Sender: FDA-Public Use
  Company Number: None

PATIENT
  Age: 40 Year
  Sex: Female
  Weight: 102.9665 kg

DRUGS (1)
  1. PHENAZOPYRID -PHENAZOPYRIDINE-  200MG BRECKENRID [Suspect]
     Indication: URINARY TRACT DISORDER
     Dosage: ONE TABLET THREE TIMES A DAY PO
     Route: 048
     Dates: start: 20080621, end: 20080628

REACTIONS (4)
  - ARTHRALGIA [None]
  - JOINT SWELLING [None]
  - OEDEMA PERIPHERAL [None]
  - PAIN IN EXTREMITY [None]
